FAERS Safety Report 9001714 (Version 1)
Quarter: 2013Q1

REPORT INFORMATION
  Report Type: Spontaneous
  Country: US (occurrence: US)
  Receive Date: 20130107
  Receipt Date: 20130107
  Transmission Date: 20140127
  Serious: No
  Sender: FDA-Public Use
  Company Number: US-ASTELLAS-2012US010693

PATIENT
  Sex: Female

DRUGS (2)
  1. MYRBETRIQ [Suspect]
     Indication: PRODUCT USED FOR UNKNOWN INDICATION
     Dosage: 25 MG, UID/QD
     Route: 065
     Dates: start: 201210, end: 201210
  2. MYRBETRIQ [Suspect]
     Dosage: 25 MG, UID/QD
     Route: 065
     Dates: start: 20121026

REACTIONS (2)
  - Urinary retention [Unknown]
  - Headache [Unknown]
